FAERS Safety Report 7272342-6 (Version None)
Quarter: 2011Q1

REPORT INFORMATION
  Report Type: 
  Country: None (occurrence: None)
  Receive Date: 20110203
  Receipt Date: 20110131
  Transmission Date: 20110831
  Serious: Yes (Death, Hospitalization, Other)
  Sender: FDA-Public Use
  Company Number: PHHY2011US07057

PATIENT
  Sex: Female

DRUGS (1)
  1. EXJADE [Suspect]
     Indication: MYELODYSPLASTIC SYNDROME
     Dosage: UNK
     Route: 048
     Dates: end: 20101101

REACTIONS (5)
  - GENERAL PHYSICAL HEALTH DETERIORATION [None]
  - ACUTE LEUKAEMIA [None]
  - NEOPLASM MALIGNANT [None]
  - DEATH [None]
  - HAEMORRHAGE [None]
